FAERS Safety Report 16042623 (Version 1)
Quarter: 2019Q2

REPORT INFORMATION
  Report Type: Spontaneous
  Country: US (occurrence: US)
  Receive Date: 20190306
  Receipt Date: 20190306
  Transmission Date: 20190711
  Serious: No
  Sender: FDA-Public Use
  Company Number: None

PATIENT
  Sex: Female

DRUGS (2)
  1. NYSTATIN 100,000 UNITS/GRAM [Suspect]
     Active Substance: NYSTATIN
  2. AMLACTIN [Suspect]
     Active Substance: AMMONIUM LACTATE

REACTIONS (1)
  - Drug ineffective [None]
